FAERS Safety Report 24962550 (Version 3)
Quarter: 2025Q2

REPORT INFORMATION
  Report Type: Spontaneous
  Country: JP (occurrence: JP)
  Receive Date: 20250212
  Receipt Date: 20250414
  Transmission Date: 20250717
  Serious: Yes (Life-Threatening, Hospitalization)
  Sender: TAKEDA
  Company Number: JP-TAKEDA-2024TJP017984

PATIENT
  Age: 66 Year
  Sex: Male
  Weight: 72.1 kg

DRUGS (17)
  1. FRUZAQLA [Suspect]
     Active Substance: FRUQUINTINIB
     Indication: Colon cancer
     Dates: start: 20241129, end: 20241203
  2. FRUZAQLA [Suspect]
     Active Substance: FRUQUINTINIB
     Dosage: 5 MILLIGRAM, QOD
     Dates: start: 20241213, end: 20241214
  3. FRUZAQLA [Suspect]
     Active Substance: FRUQUINTINIB
  4. MORPHINE HYDROCHLORIDE [Concomitant]
     Active Substance: MORPHINE HYDROCHLORIDE
  5. LOXOPROFEN [Concomitant]
     Active Substance: LOXOPROFEN
  6. REBAMIPIDE [Concomitant]
     Active Substance: REBAMIPIDE
  7. MS CONTIN [Concomitant]
     Active Substance: MORPHINE SULFATE
     Dosage: 20 MILLIGRAM, BID
  8. CARBAZOCHROME SODIUM SULFONATE [Concomitant]
     Active Substance: CARBAZOCHROME SODIUM SULFONATE
  9. TRANEXAMIC ACID [Concomitant]
     Active Substance: TRANEXAMIC ACID
  10. MAGNESIUM OXIDE [Concomitant]
     Active Substance: MAGNESIUM OXIDE
     Dosage: 330 MILLIGRAM, TID
  11. SYMPROIC [Concomitant]
     Active Substance: NALDEMEDINE TOSYLATE
  12. AMBROXOL HYDROCHLORIDE [Concomitant]
     Active Substance: AMBROXOL HYDROCHLORIDE
  13. ESOMEPRAZOLE [Concomitant]
     Active Substance: ESOMEPRAZOLE
  14. OLMESARTAN [Concomitant]
     Active Substance: OLMESARTAN
  15. MONTELUKAST [Concomitant]
     Active Substance: MONTELUKAST
     Dosage: 10 MILLIGRAM, QD
  16. TEGRETOL [Concomitant]
     Active Substance: CARBAMAZEPINE
  17. IGURATIMOD [Concomitant]
     Active Substance: IGURATIMOD
     Dosage: 25 MILLIGRAM, BID

REACTIONS (5)
  - Atelectasis [Unknown]
  - Hypertensive emergency [Recovering/Resolving]
  - Haemoptysis [Recovering/Resolving]
  - Pneumonia [Unknown]
  - Malaise [Recovering/Resolving]

NARRATIVE: CASE EVENT DATE: 20241201
